FAERS Safety Report 6340168-3 (Version None)
Quarter: 2009Q3

REPORT INFORMATION
  Report Type: 
  Country: None (occurrence: None)
  Receive Date: 20090902
  Receipt Date: 20090825
  Transmission Date: 20100115
  Serious: Yes (Life-Threatening, Hospitalization)
  Sender: FDA-Public Use
  Company Number: GXKR2009US09564

PATIENT
  Age: 11 Year
  Sex: Female
  Weight: 68 kg

DRUGS (23)
  1. ENOXAPARIN SODIUM [Suspect]
     Indication: DEEP VEIN THROMBOSIS
  2. ENOXAPARIN SODIUM [Suspect]
     Indication: PULMONARY EMBOLISM
  3. HEPARIN [Suspect]
     Indication: DEEP VEIN THROMBOSIS
     Dosage: 70 IU/KG, BOLUS, IV BOLUS, 18 IU/KG/H, CONT, INFUSION; 10 IU/KG/H, CONT, INFUSION
     Route: 040
  4. HEPARIN [Suspect]
     Indication: PULMONARY EMBOLISM
     Dosage: 70 IU/KG, BOLUS, IV BOLUS, 18 IU/KG/H, CONT, INFUSION; 10 IU/KG/H, CONT, INFUSION
     Route: 040
  5. WARFARIN SODIUM [Suspect]
     Indication: DEEP VEIN THROMBOSIS
     Dosage: 5 MG, Q48H, ORAL; 3 MG/DAY, 5 MG/DAY, 7 MG/DAY, 8 MG/DAY, 7 MG/DAY
  6. WARFARIN SODIUM [Suspect]
     Indication: PULMONARY EMBOLISM
     Dosage: 5 MG, Q48H, ORAL; 3 MG/DAY, 5 MG/DAY, 7 MG/DAY, 8 MG/DAY, 7 MG/DAY
  7. WARFARIN SODIUM [Suspect]
     Indication: DEEP VEIN THROMBOSIS
     Dosage: 5 MG, Q48H, ORAL; 3 MG/DAY, 5 MG/DAY, 7 MG/DAY, 8 MG/DAY, 7 MG/DAY
  8. WARFARIN SODIUM [Suspect]
     Indication: PULMONARY EMBOLISM
     Dosage: 5 MG, Q48H, ORAL; 3 MG/DAY, 5 MG/DAY, 7 MG/DAY, 8 MG/DAY, 7 MG/DAY
  9. WARFARIN SODIUM [Suspect]
     Indication: DEEP VEIN THROMBOSIS
     Dosage: 5 MG, Q48H, ORAL; 3 MG/DAY, 5 MG/DAY, 7 MG/DAY, 8 MG/DAY, 7 MG/DAY
  10. WARFARIN SODIUM [Suspect]
     Indication: PULMONARY EMBOLISM
     Dosage: 5 MG, Q48H, ORAL; 3 MG/DAY, 5 MG/DAY, 7 MG/DAY, 8 MG/DAY, 7 MG/DAY
  11. WARFARIN SODIUM [Suspect]
     Indication: DEEP VEIN THROMBOSIS
     Dosage: 5 MG, Q48H, ORAL; 3 MG/DAY, 5 MG/DAY, 7 MG/DAY, 8 MG/DAY, 7 MG/DAY
  12. WARFARIN SODIUM [Suspect]
     Indication: PULMONARY EMBOLISM
     Dosage: 5 MG, Q48H, ORAL; 3 MG/DAY, 5 MG/DAY, 7 MG/DAY, 8 MG/DAY, 7 MG/DAY
  13. CEFAZOLIN [Suspect]
  14. RANITIDINE [Suspect]
  15. CHLORAL HYDRATE (CHLORAL HYDRATE) [Suspect]
     Dosage: 1 DF, ONCE/SINGLE
  16. FONAPARINUX (FONAPARINUX) [Suspect]
     Indication: DEEP VEIN THROMBOSIS
     Dosage: 7.5 MG DAILY, SUBCUTANEOUS
     Route: 058
  17. FONAPARINUX (FONAPARINUX) [Suspect]
     Indication: PULMONARY EMBOLISM
     Dosage: 7.5 MG DAILY, SUBCUTANEOUS
     Route: 058
  18. BIVALIRUDIN [Suspect]
     Indication: DEEP VEIN THROMBOSIS
     Dosage: 125 UG/KG, BOLUS, IV BOLUS
     Route: 040
  19. BIVALIRUDIN [Suspect]
     Indication: PULMONARY EMBOLISM
     Dosage: 125 UG/KG, BOLUS, IV BOLUS
     Route: 040
  20. ALTEPLASE (ALTEPLASE) [Concomitant]
  21. OXYGEN (OXYGEN) [Concomitant]
  22. AGRATROBAN (AGRATROBAN) [Concomitant]
  23. CORTICOSTEROID (NO INGREDIENTS/SUBSTANCES) [Concomitant]

REACTIONS (18)
  - ABDOMINAL PAIN [None]
  - ANXIETY [None]
  - BLOOD CREATININE INCREASED [None]
  - CATHETER RELATED COMPLICATION [None]
  - DEEP VEIN THROMBOSIS [None]
  - DRUG INTERACTION [None]
  - HEPARIN-INDUCED THROMBOCYTOPENIA [None]
  - HYPERTENSION [None]
  - INTERNATIONAL NORMALISED RATIO INCREASED [None]
  - KLEBSIELLA SEPSIS [None]
  - OEDEMA PERIPHERAL [None]
  - PNEUMOTHORAX [None]
  - POST THROMBOTIC SYNDROME [None]
  - PULMONARY EMBOLISM [None]
  - PULMONARY HAEMORRHAGE [None]
  - PULMONARY HYPERTENSION [None]
  - RENAL VEIN THROMBOSIS [None]
  - RESPIRATORY FAILURE [None]
